FAERS Safety Report 6735631-7 (Version None)
Quarter: 2010Q2

REPORT INFORMATION
  Report Type: 
  Country: None (occurrence: None)
  Receive Date: 20100520
  Receipt Date: 20100520
  Transmission Date: 20101027
  Serious: No
  Sender: FDA-Public Use
  Company Number: None

PATIENT
  Age: 56 Year
  Sex: 0
  Weight: 106.5953 kg

DRUGS (1)
  1. CLONIDINE [Suspect]
     Indication: BLOOD PRESSURE
     Dosage: 1 PATCH PER WEEK
     Route: 062
     Dates: start: 20100410, end: 20100411

REACTIONS (1)
  - PRODUCT ADHESION ISSUE [None]
